FAERS Safety Report 18628996 (Version 1)
Quarter: 2020Q4

REPORT INFORMATION
  Report Type: Spontaneous
  Country: US (occurrence: US)
  Receive Date: 20201217
  Receipt Date: 20201217
  Transmission Date: 20210114
  Serious: Yes (Death)
  Sender: FDA-Public Use
  Company Number: None

PATIENT
  Age: 66 Year
  Sex: Female
  Weight: 59.96 kg

DRUGS (1)
  1. BAMLANIVIMAB 700MG/20ML [Suspect]
     Active Substance: BAMLANIVIMAB
     Indication: COVID-19
     Route: 042

REACTIONS (2)
  - Cardio-respiratory arrest [None]
  - Intentional product use issue [None]

NARRATIVE: CASE EVENT DATE: 20201213
